FAERS Safety Report 12598732 (Version 1)
Quarter: 2016Q3

REPORT INFORMATION
  Report Type: Spontaneous
  Country: US (occurrence: US)
  Receive Date: 20160727
  Receipt Date: 20160727
  Transmission Date: 20161109
  Serious: Yes (Other)
  Sender: FDA-Public Use
  Company Number: US-SA-2016SA134209

PATIENT
  Age: 68 Year
  Sex: Female
  Weight: 49.8 kg

DRUGS (1)
  1. GOLD BOND ULTIMATE STRENGTH AND RESILIENCE LOTION [Suspect]
     Active Substance: ALOE VERA LEAF
     Indication: DRY SKIN
     Dosage: DOSE:13 OUNCE
     Route: 061

REACTIONS (1)
  - Erythema [Not Recovered/Not Resolved]

NARRATIVE: CASE EVENT DATE: 20160325
